FAERS Safety Report 19974244 (Version 5)
Quarter: 2022Q3

REPORT INFORMATION
  Report Type: Spontaneous
  Country: US (occurrence: US)
  Receive Date: 20211020
  Receipt Date: 20220913
  Transmission Date: 20221026
  Serious: Yes (Other)
  Sender: FDA-Public Use
  Company Number: US-PFIZER INC-202101334454

PATIENT
  Age: 67 Year
  Sex: Female

DRUGS (3)
  1. IBRANCE [Suspect]
     Active Substance: PALBOCICLIB
     Dosage: 100 MG
     Route: 048
     Dates: start: 20200102
  2. IBRANCE [Suspect]
     Active Substance: PALBOCICLIB
     Dosage: UNK
     Route: 048
     Dates: start: 20211007
  3. IBRANCE [Suspect]
     Active Substance: PALBOCICLIB
     Dosage: 100 MG

REACTIONS (15)
  - Neutropenia [Unknown]
  - White blood cell count decreased [Unknown]
  - Fatigue [Unknown]
  - Onychoclasis [Unknown]
  - Stomatitis [Unknown]
  - Arthralgia [Unknown]
  - Urinary tract infection [Unknown]
  - Increased tendency to bruise [Unknown]
  - Nail disorder [Unknown]
  - Alopecia [Unknown]
  - Poor quality sleep [Unknown]
  - COVID-19 [Unknown]
  - Anaemia [Unknown]
  - Blister [Unknown]
  - Pruritus [Unknown]
